FAERS Safety Report 7002702-X (Version None)
Quarter: 2010Q3

REPORT INFORMATION
  Report Type: 
  Country: None (occurrence: None)
  Receive Date: 20100917
  Receipt Date: 20100917
  Transmission Date: 20110219
  Serious: Yes (Death)
  Sender: FDA-Public Use
  Company Number: None

PATIENT
  Sex: Female
  Weight: 84.369 kg

DRUGS (3)
  1. TYLENOL-500 [Suspect]
     Indication: RHEUMATOID ARTHRITIS
     Dates: start: 20080101
  2. TYLENOL-500 [Suspect]
     Indication: RHEUMATOID ARTHRITIS
     Dates: start: 20090420
  3. ACETAMINPHEN [Concomitant]

REACTIONS (4)
  - ANAL HAEMORRHAGE [None]
  - HAEMATEMESIS [None]
  - HAEMORRHAGE [None]
  - MOUTH HAEMORRHAGE [None]
